FAERS Safety Report 16644607 (Version 2)
Quarter: 2019Q3

REPORT INFORMATION
  Report Type: Spontaneous
  Country: US (occurrence: US)
  Receive Date: 20190729
  Receipt Date: 20190809
  Transmission Date: 20191004
  Serious: No
  Sender: FDA-Public Use
  Company Number: US-SA-2018SA387985

PATIENT
  Age: 70 Year
  Sex: Female

DRUGS (2)
  1. LANTUS SOLOSTAR [Suspect]
     Active Substance: INSULIN GLARGINE
     Indication: TYPE 2 DIABETES MELLITUS
     Dosage: 25 IU, ONCE EVERY EVENING
     Route: 065
  2. LANTUS SOLOSTAR [Suspect]
     Active Substance: INSULIN GLARGINE
     Dosage: 30 U
     Route: 065

REACTIONS (3)
  - Incorrect dose administered by device [Unknown]
  - Blood glucose increased [Unknown]
  - Device operational issue [Unknown]

NARRATIVE: CASE EVENT DATE: 20190721
